FAERS Safety Report 9387019 (Version 1)
Quarter: 2013Q4

REPORT INFORMATION
  Report Type: Spontaneous
  Country: US (occurrence: None)
  Receive Date: 20130703
  Receipt Date: 20130703
  Transmission Date: 20140711
  Serious: Yes (Hospitalization)
  Sender: FDA-Public Use
  Company Number: None

PATIENT
  Age: 56 Year
  Sex: Female

DRUGS (12)
  1. OFATUMUMAB [Suspect]
     Indication: CHRONIC LYMPHOCYTIC LEUKAEMIA
     Route: 042
     Dates: end: 20130624
  2. HIGH DOSE METHYLPREDNISOLONE 1,000MG/M2 [Suspect]
     Indication: CHRONIC LYMPHOCYTIC LEUKAEMIA
     Dosage: 1000MG/M2  DAY 1,2, AND 3
     Dates: end: 20130612
  3. ACYCLOVIR [Concomitant]
  4. ALLOPURINOL [Concomitant]
  5. CEPHALEXIN [Concomitant]
  6. COZAAR [Concomitant]
  7. DILAUDID [Concomitant]
  8. FONDAPARINUX [Concomitant]
  9. GABAPENTIN [Concomitant]
  10. LASIX [Concomitant]
  11. LEVOXYL [Concomitant]
  12. VORICONAZOLE [Concomitant]

REACTIONS (4)
  - Fatigue [None]
  - Decreased appetite [None]
  - Cellulitis [None]
  - Pneumonia [None]
